FAERS Safety Report 5759622-8 (Version None)
Quarter: 2008Q2

REPORT INFORMATION
  Report Type: 
  Country: None (occurrence: None)
  Receive Date: 20080605
  Receipt Date: 20080529
  Transmission Date: 20081010
  Serious: Yes (Other)
  Sender: FDA-Public Use
  Company Number: US-JNJFOC-20080204615

PATIENT
  Sex: Female
  Weight: 72.58 kg

DRUGS (6)
  1. FENTANYL TRANSDERMAL SYSTEM [Suspect]
     Route: 062
  2. FENTANYL TRANSDERMAL SYSTEM [Suspect]
     Indication: BACK PAIN
     Route: 062
  3. VICODIN ES [Concomitant]
     Indication: PAIN
     Route: 048
  4. ZOLOFT [Concomitant]
     Indication: ANXIETY
     Route: 048
  5. PLENDIL [Concomitant]
     Indication: HYPERTENSION
     Route: 048
  6. TRIAMTERENE [Concomitant]
     Indication: HYPERTENSION
     Dosage: 18.75/12.5, 0.5 TABLET DAILY
     Route: 048

REACTIONS (6)
  - ARRHYTHMIA [None]
  - BLOOD PRESSURE DECREASED [None]
  - DIZZINESS [None]
  - INAPPROPRIATE SCHEDULE OF DRUG ADMINISTRATION [None]
  - NAUSEA [None]
  - VOMITING [None]
